FAERS Safety Report 7839708-4 (Version None)
Quarter: 2011Q4

REPORT INFORMATION
  Report Type: 
  Country: None (occurrence: None)
  Receive Date: 20111025
  Receipt Date: 20111013
  Transmission Date: 20120403
  Serious: Yes (Other)
  Sender: FDA-Public Use
  Company Number: ES-RANBAXY-2011R1-49669

PATIENT
  Age: 41 Year
  Sex: Female

DRUGS (2)
  1. NAPROXEN [Suspect]
     Indication: ALLERGY TEST
     Dosage: UNK
     Route: 048
  2. NAPROXEN [Suspect]
     Indication: PRODUCT USED FOR UNKNOWN INDICATION
     Dosage: UNK
     Route: 048

REACTIONS (1)
  - ANAPHYLACTIC REACTION [None]
